FAERS Safety Report 21724284 (Version 2)
Quarter: 2022Q4

REPORT INFORMATION
  Report Type: Spontaneous
  Country: US (occurrence: US)
  Receive Date: 20221213
  Receipt Date: 20221213
  Transmission Date: 20230112
  Serious: Yes (Other)
  Sender: FDA-Public Use
  Company Number: US-ALLERGAN-2234671US

PATIENT
  Sex: Female

DRUGS (2)
  1. DURYSTA [Suspect]
     Active Substance: BIMATOPROST
     Indication: Open angle glaucoma
     Dosage: 10 ?G, SINGLE
     Route: 031
     Dates: start: 2022, end: 2022
  2. DURYSTA [Suspect]
     Active Substance: BIMATOPROST
     Indication: Open angle glaucoma
     Dosage: 10 ?G, SINGLE
     Route: 031
     Dates: start: 2022, end: 2022

REACTIONS (2)
  - Corneal oedema [Not Recovered/Not Resolved]
  - Corneal endothelial cell loss [Not Recovered/Not Resolved]

NARRATIVE: CASE EVENT DATE: 20220901
